FAERS Safety Report 24331913 (Version 1)
Quarter: 2024Q3

REPORT INFORMATION
  Report Type: Report from Study
  Country: ES (occurrence: ES)
  Receive Date: 20240918
  Receipt Date: 20240918
  Transmission Date: 20241017
  Serious: Yes (Hospitalization, Other)
  Sender: AUROBINDO
  Company Number: ES-EMA-DD-20171220-ashwinihvp-100340

PATIENT
  Age: 72 Year
  Sex: Female

DRUGS (10)
  1. IRINOTECAN [Suspect]
     Active Substance: IRINOTECAN
     Indication: Colorectal cancer metastatic
     Dosage: 273 MILLIGRAM, CYCLICAL
     Route: 041
     Dates: start: 20160225, end: 20160225
  2. IRINOTECAN [Suspect]
     Active Substance: IRINOTECAN
     Dosage: 273 MILLIGRAM, CYCLICAL
     Route: 041
     Dates: start: 20160323, end: 20160323
  3. ZALTRAP [Suspect]
     Active Substance: ZIV-AFLIBERCEPT
     Indication: Colorectal cancer metastatic
     Dosage: 220 MILLIGRAM, CYCLICAL
     Route: 041
     Dates: start: 20160225, end: 20160323
  4. ZALTRAP [Suspect]
     Active Substance: ZIV-AFLIBERCEPT
     Dosage: 220 MILLIGRAM, CYCLICAL
     Route: 041
     Dates: start: 20160323, end: 20160323
  5. FLUOROURACIL [Suspect]
     Active Substance: FLUOROURACIL
     Indication: Colorectal cancer metastatic
     Dosage: 608 MILLIGRAM, CYCLICAL
     Route: 040
     Dates: start: 20160225, end: 20160225
  6. FLUOROURACIL [Suspect]
     Active Substance: FLUOROURACIL
     Dosage: 608 MILLIGRAM, CYCLICAL
     Route: 040
     Dates: start: 20160323, end: 20160323
  7. FLUOROURACIL [Suspect]
     Active Substance: FLUOROURACIL
     Dosage: 3648 MILLIGRAM, CYCLICAL
     Route: 041
     Dates: start: 20160225, end: 20160225
  8. FLUOROURACIL [Suspect]
     Active Substance: FLUOROURACIL
     Dosage: 3648 MILLIGRAM, CYCLICAL
     Route: 041
     Dates: start: 20160323, end: 20160323
  9. LEUCOVORIN [Suspect]
     Active Substance: LEUCOVORIN\LEUCOVORIN CALCIUM
     Indication: Colorectal cancer metastatic
     Dosage: 608 MILLIGRAM, CYCLICAL
     Route: 041
     Dates: start: 20160225, end: 20160323
  10. LEUCOVORIN [Suspect]
     Active Substance: LEUCOVORIN\LEUCOVORIN CALCIUM
     Dosage: 608 MILLIGRAM, CYCLICAL
     Route: 041
     Dates: start: 20160323, end: 20160323

REACTIONS (8)
  - Neutropenia [Recovered/Resolved]
  - Anaemia [Recovered/Resolved]
  - Diarrhoea [Recovered/Resolved]
  - Headache [Recovered/Resolved]
  - Stomatitis [Recovered/Resolved]
  - Proctalgia [Recovered/Resolved]
  - Leukocytosis [Recovered/Resolved]
  - Condition aggravated [Recovered/Resolved]

NARRATIVE: CASE EVENT DATE: 20160329
